FAERS Safety Report 4810570-7 (Version None)
Quarter: 2005Q4

REPORT INFORMATION
  Report Type: 
  Country: None (occurrence: None)
  Receive Date: 20051024
  Receipt Date: 20051006
  Transmission Date: 20060501
  Serious: Yes (Hospitalization)
  Sender: FDA-Public Use
  Company Number: UA-2005-020828

PATIENT
  Age: 56 Year
  Sex: Female

DRUGS (3)
  1. ANGELIQ [Suspect]
     Indication: MENOPAUSAL SYMPTOMS
     Dosage: 1 TAB (S), 1X/DAY, ORAL
     Route: 048
     Dates: start: 20050401, end: 20050901
  2. TENORIC (CHLORTALIDONE) [Concomitant]
  3. BELLASTESIN [Concomitant]

REACTIONS (6)
  - ABDOMINAL PAIN [None]
  - BLOOD PRESSURE DECREASED [None]
  - BODY TEMPERATURE INCREASED [None]
  - DIARRHOEA [None]
  - HERPES VIRUS INFECTION [None]
  - RASH VESICULAR [None]
